FAERS Safety Report 8395953-3 (Version None)
Quarter: 2012Q2

REPORT INFORMATION
  Report Type: 
  Country: None (occurrence: None)
  Receive Date: 20120529
  Receipt Date: 20120529
  Transmission Date: 20120825
  Serious: Yes (Other)
  Sender: FDA-Public Use
  Company Number: None

PATIENT
  Age: 16 Year
  Sex: Female
  Weight: 62.5964 kg

DRUGS (1)
  1. AMNESTEEM [Suspect]
     Indication: ACNE
     Dosage: 40MG 2X/DAY

REACTIONS (6)
  - OSTEOPENIA [None]
  - FRACTURE [None]
  - IMPAIRED HEALING [None]
  - BONE DENSITY DECREASED [None]
  - ANKLE FRACTURE [None]
  - OSTEOPOROSIS [None]
